FAERS Safety Report 13414869 (Version 3)
Quarter: 2019Q3

REPORT INFORMATION
  Report Type: Spontaneous
  Country: US (occurrence: US)
  Receive Date: 20170406
  Receipt Date: 20190913
  Transmission Date: 20191004
  Serious: No
  Sender: FDA-Public Use
  Company Number: US-JNJFOC-20170319702

PATIENT
  Age: 20 Year
  Sex: Male

DRUGS (16)
  1. RISPERDAL [Suspect]
     Active Substance: RISPERIDONE
     Indication: TOURETTE^S DISORDER
     Dosage: 1, 1 A DAY FOR 1 WEEK, THEN 2 A DAY.
     Route: 048
     Dates: start: 20100309, end: 20100420
  2. RISPERDAL [Suspect]
     Active Substance: RISPERIDONE
     Dosage: 2 TABLETS
     Route: 048
     Dates: start: 20100726, end: 20101001
  3. RISPERDAL [Suspect]
     Active Substance: RISPERIDONE
     Route: 048
     Dates: start: 20121107, end: 20131203
  4. RISPERDAL [Suspect]
     Active Substance: RISPERIDONE
     Indication: AFFECTIVE DISORDER
     Dosage: 4MG EVERY MORNING,2MG AT BEDTIME
     Route: 048
     Dates: start: 20121113
  5. RISPERDAL [Suspect]
     Active Substance: RISPERIDONE
     Dosage: 1/2 TABLET
     Route: 048
     Dates: start: 20130407, end: 20131002
  6. RISPERDAL [Suspect]
     Active Substance: RISPERIDONE
     Route: 048
     Dates: start: 20131002
  7. RISPERDAL [Suspect]
     Active Substance: RISPERIDONE
     Route: 048
     Dates: start: 20131129
  8. RISPERDAL [Suspect]
     Active Substance: RISPERIDONE
     Route: 048
     Dates: end: 20131203
  9. RISPERDAL [Suspect]
     Active Substance: RISPERIDONE
     Indication: TIC
     Dosage: 1 FOR 3 DAYS THEN STOP
     Route: 048
     Dates: start: 20100602
  10. RISPERDAL [Suspect]
     Active Substance: RISPERIDONE
     Indication: TOURETTE^S DISORDER
     Route: 048
     Dates: start: 20100309, end: 20110111
  11. RISPERDAL [Suspect]
     Active Substance: RISPERIDONE
     Dosage: 1 IN AM,1/2 AT BEDTIME
     Route: 048
     Dates: start: 20130219
  12. RISPERDAL [Suspect]
     Active Substance: RISPERIDONE
     Route: 048
     Dates: end: 20110111
  13. RISPERDAL [Suspect]
     Active Substance: RISPERIDONE
     Indication: TIC
     Route: 048
     Dates: start: 20121107
  14. RISPERDAL [Suspect]
     Active Substance: RISPERIDONE
     Dosage: 3MG 2 AT BEDTIME, 4MG 1 IN AM,
     Route: 048
     Dates: start: 20130307
  15. RISPERDAL [Suspect]
     Active Substance: RISPERIDONE
     Dosage: 4MG IN AM,3MG AT BEDTIME
     Route: 048
     Dates: start: 20130319
  16. RISPERDAL [Suspect]
     Active Substance: RISPERIDONE
     Route: 048
     Dates: start: 20131112

REACTIONS (6)
  - Gynaecomastia [Unknown]
  - Off label use [Unknown]
  - Emotional distress [Unknown]
  - Galactorrhoea [Unknown]
  - Weight increased [Unknown]
  - Product use in unapproved indication [Unknown]

NARRATIVE: CASE EVENT DATE: 20100309
